FAERS Safety Report 12189927 (Version 1)
Quarter: 2016Q1

REPORT INFORMATION
  Report Type: Spontaneous
  Country: US (occurrence: None)
  Receive Date: 20160317
  Receipt Date: 20160317
  Transmission Date: 20160526
  Serious: Yes (Death)
  Sender: FDA-Public Use
  Company Number: None

PATIENT
  Age: 60 Year
  Sex: Female

DRUGS (12)
  1. CYCLOBENZAPR [Concomitant]
  2. PROCHLORPER [Concomitant]
  3. XALKORI [Suspect]
     Active Substance: CRIZOTINIB
     Indication: NEOPLASM MALIGNANT
     Route: 048
     Dates: start: 20151111, end: 20160312
  4. DEXAMETHASON [Concomitant]
     Active Substance: DEXAMETHASONE
  5. HYDROCO/APAP [Concomitant]
     Active Substance: ACETAMINOPHEN\HYDROCODONE
  6. LISINOPRIL. [Concomitant]
     Active Substance: LISINOPRIL
  7. ATORVASTATIN [Concomitant]
     Active Substance: ATORVASTATIN
  8. METOPROLOL. [Concomitant]
     Active Substance: METOPROLOL
  9. OXYCODONE [Concomitant]
     Active Substance: OXYCODONE
  10. PANTOPRAZOLE [Concomitant]
     Active Substance: PANTOPRAZOLE SODIUM
  11. ASPIRIN. [Concomitant]
     Active Substance: ASPIRIN
  12. ONDANSETRON [Concomitant]
     Active Substance: ONDANSETRON

REACTIONS (2)
  - Myocardial infarction [None]
  - Disease progression [None]

NARRATIVE: CASE EVENT DATE: 20160312
